APPROVED DRUG PRODUCT: RIDAURA
Active Ingredient: AURANOFIN
Strength: 3MG
Dosage Form/Route: CAPSULE;ORAL
Application: N018689 | Product #001
Applicant: LEGACY PHARMA INC
Approved: May 24, 1985 | RLD: Yes | RS: Yes | Type: RX